FAERS Safety Report 24057495 (Version 2)
Quarter: 2024Q3

REPORT INFORMATION
  Report Type: Report from Study
  Country: US (occurrence: US)
  Receive Date: 20240706
  Receipt Date: 20240714
  Transmission Date: 20241016
  Serious: Yes (Hospitalization, Other)
  Sender: JAZZ
  Company Number: US-JAZZ PHARMACEUTICALS-2024-US-007453

PATIENT
  Sex: Female

DRUGS (3)
  1. EPIDIOLEX [Suspect]
     Active Substance: CANNABIDIOL
     Indication: Lennox-Gastaut syndrome
     Dosage: GIVE 0.6ML BY MOUTH EVERY MORNING AND 0.9 ML IN THE EVENING FOR 1 WEEK, THEN INCREASE TO 0.9ML TWICE
     Route: 048
     Dates: start: 202404
  2. EPIDIOLEX [Suspect]
     Active Substance: CANNABIDIOL
     Indication: Epilepsy
     Dosage: 0.9 MILLILITER, BID
     Route: 048
  3. EPIDIOLEX [Suspect]
     Active Substance: CANNABIDIOL
     Indication: Infantile spasms

REACTIONS (5)
  - Pneumonia viral [Unknown]
  - Pneumonia aspiration [Unknown]
  - COVID-19 [Unknown]
  - Fatigue [Unknown]
  - Decreased appetite [Unknown]
